FAERS Safety Report 15772008 (Version 3)
Quarter: 2019Q1

REPORT INFORMATION
  Report Type: Report from Study
  Country: JP (occurrence: JP)
  Receive Date: 20181228
  Receipt Date: 20190318
  Transmission Date: 20190417
  Serious: Yes (Hospitalization)
  Sender: FDA-Public Use
  Company Number: JP-ACTELION-A-CH2018-184202

PATIENT
  Age: 60 Year
  Sex: Male

DRUGS (11)
  1. AMIODARONE [Concomitant]
     Active Substance: AMIODARONE
  2. ROSUVASTATIN CALCIUM. [Concomitant]
     Active Substance: ROSUVASTATIN CALCIUM
  3. AZILVA [Concomitant]
     Active Substance: AZILSARTAN KAMEDOXOMIL
  4. AMLODIPINE [Concomitant]
     Active Substance: AMLODIPINE BESYLATE
  5. EPADEL-S [Concomitant]
     Active Substance: ICOSAPENT ETHYL
  6. ARTIST [Concomitant]
     Active Substance: CARVEDILOL
  7. AZOSEMIDE [Concomitant]
     Active Substance: AZOSEMIDE
  8. XARELTO [Concomitant]
     Active Substance: RIVAROXABAN
  9. LANSOPRAZOLE. [Concomitant]
     Active Substance: LANSOPRAZOLE
  10. OPSUMIT [Suspect]
     Active Substance: MACITENTAN
     Indication: PULMONARY ARTERIAL HYPERTENSION
     Dosage: 10 MG, QD
     Route: 048
     Dates: start: 20161107, end: 20180502
  11. TAKELDA [Concomitant]
     Active Substance: ASPIRIN\LANSOPRAZOLE

REACTIONS (5)
  - Dyspnoea [Recovering/Resolving]
  - Loss of consciousness [Recovering/Resolving]
  - Atrial fibrillation [Recovering/Resolving]
  - Cardiac failure [Recovering/Resolving]
  - Hypotension [Recovering/Resolving]

NARRATIVE: CASE EVENT DATE: 20180406
